FAERS Safety Report 4528745-3 (Version None)
Quarter: 2004Q4

REPORT INFORMATION
  Report Type: 
  Country: None (occurrence: None)
  Receive Date: 20041216
  Receipt Date: 20040726
  Transmission Date: 20050328
  Serious: Yes (Life-Threatening)
  Sender: FDA-Public Use
  Company Number: JP-ROCHE-375191

PATIENT
  Age: 92 Year
  Sex: Male

DRUGS (16)
  1. TORSEMIDE [Suspect]
     Indication: OEDEMA
     Route: 048
     Dates: start: 20030714, end: 20040708
  2. HERBESSER [Suspect]
     Indication: DRUG USE FOR UNKNOWN INDICATION
     Route: 065
     Dates: start: 19940615
  3. MINIPRESS [Suspect]
     Indication: DRUG USE FOR UNKNOWN INDICATION
     Route: 048
     Dates: start: 19940615
  4. MUCOSOLVAN [Suspect]
     Indication: DRUG USE FOR UNKNOWN INDICATION
     Route: 048
     Dates: start: 19940615
  5. DASEN [Suspect]
     Indication: DRUG USE FOR UNKNOWN INDICATION
     Route: 048
     Dates: start: 19960615
  6. BASEN [Suspect]
     Indication: DRUG USE FOR UNKNOWN INDICATION
     Route: 048
     Dates: start: 19990726
  7. DAONIL [Concomitant]
     Dates: start: 19940615
  8. MIYA BM [Concomitant]
     Dates: start: 19940615
  9. PURSENNID [Concomitant]
     Dates: start: 19940615
  10. IPD [Concomitant]
     Dates: start: 20040815
  11. LAXOBERON [Concomitant]
  12. UNKNOWN DRUG [Concomitant]
     Dosage: DRUG NAME REPORTED AS MILTAX (KETOPROFEN).
  13. MASI-NIN-GAN [Concomitant]
  14. LASIX [Concomitant]
  15. WARFARIN SODIUM [Concomitant]
     Dosage: ON AN UNSPECIFIED DATE THE DOSE WAS INCREASED TO 2MG.
     Dates: start: 20040420
  16. ASPIRIN [Concomitant]
     Dates: start: 20030615

REACTIONS (5)
  - ATRIOVENTRICULAR BLOCK COMPLETE [None]
  - BRADYCARDIA [None]
  - ELECTROCARDIOGRAM P WAVE ABNORMAL [None]
  - HYPERKALAEMIA [None]
  - SHOCK [None]
